FAERS Safety Report 9772493 (Version 1)
Quarter: 2013Q4

REPORT INFORMATION
  Report Type: Spontaneous
  Country: ES (occurrence: ES)
  Receive Date: 20131219
  Receipt Date: 20131219
  Transmission Date: 20140711
  Serious: Yes (Death, Other)
  Sender: FDA-Public Use
  Company Number: ES-ASTELLAS-2013US013060

PATIENT
  Age: 13 Year
  Sex: Female

DRUGS (6)
  1. AMBISOME [Suspect]
     Indication: FUSARIUM INFECTION
     Dosage: UNK
     Route: 065
  2. AMBISOME [Suspect]
     Indication: FUSARIUM INFECTION
  3. FILGRASTIM [Concomitant]
     Indication: FEBRILE NEUTROPENIA
     Dosage: UNK
     Route: 065
  4. VANCOMYCIN [Concomitant]
     Indication: PNEUMONIA
     Dosage: UNK
     Route: 065
  5. MEROPENEM [Concomitant]
     Indication: PNEUMONIA
     Dosage: UNK
     Route: 065
  6. VORICONAZOLE [Concomitant]
     Indication: FUSARIUM INFECTION
     Dosage: UNK
     Route: 065

REACTIONS (1)
  - Drug ineffective [Fatal]
